FAERS Safety Report 12509488 (Version 5)
Quarter: 2022Q2

REPORT INFORMATION
  Report Type: Report from Study
  Country: DE (occurrence: DE)
  Receive Date: 20160629
  Receipt Date: 20220426
  Transmission Date: 20220721
  Serious: Yes (Hospitalization)
  Sender: FDA-Public Use
  Company Number: PHHY2016DE010377

PATIENT
  Age: 8 Year
  Sex: Male
  Weight: 26.2 kg

DRUGS (6)
  1. GLIVEC [Suspect]
     Active Substance: IMATINIB MESYLATE
     Indication: Acute lymphocytic leukaemia
     Dosage: 300 MG, QD
     Route: 048
     Dates: start: 20131220, end: 20140313
  2. GLIVEC [Suspect]
     Active Substance: IMATINIB MESYLATE
     Dosage: 250 MG AND 300 MG , QOD (ALTERNATING)
     Route: 048
     Dates: start: 20140314, end: 20140612
  3. GLIVEC [Suspect]
     Active Substance: IMATINIB MESYLATE
     Dosage: 300 MG, QD
     Route: 048
     Dates: end: 20160121
  4. METHOTREXATE [Suspect]
     Active Substance: METHOTREXATE
     Indication: Acute lymphocytic leukaemia
     Dosage: 30 MG, QMO
     Route: 048
     Dates: start: 20141126, end: 20160121
  5. PURINETHOL [Suspect]
     Active Substance: MERCAPTOPURINE
     Indication: Acute lymphocytic leukaemia
     Dosage: 80 MG, QD
     Route: 048
     Dates: start: 20141121, end: 20160121
  6. KEPINOL [Concomitant]
     Active Substance: SULFAMETHOXAZOLE\TRIMETHOPRIM
     Indication: Prophylaxis
     Dosage: 140 MG, QD
     Route: 048
     Dates: start: 20131211

REACTIONS (10)
  - Pancytopenia [Recovered/Resolved]
  - Meningococcal sepsis [Recovered/Resolved]
  - C-reactive protein increased [Unknown]
  - Pyrexia [Recovered/Resolved]
  - Infection [Recovered/Resolved]
  - Decreased activity [Recovered/Resolved]
  - Headache [Recovered/Resolved]
  - Pyrexia [Recovered/Resolved]
  - Vomiting [Recovered/Resolved]
  - Neutrophil count decreased [Unknown]

NARRATIVE: CASE EVENT DATE: 20151111
